FAERS Safety Report 5763311-3 (Version None)
Quarter: 2008Q2

REPORT INFORMATION
  Report Type: 
  Country: None (occurrence: None)
  Receive Date: 20080609
  Receipt Date: 20080530
  Transmission Date: 20081010
  Serious: Yes (Hospitalization)
  Sender: FDA-Public Use
  Company Number: US-ABBOTT-07P-163-0416459-00

PATIENT
  Sex: Female
  Weight: 118.04 kg

DRUGS (18)
  1. HUMIRA [Suspect]
     Indication: PSORIATIC ARTHROPATHY
     Route: 058
     Dates: start: 20040101, end: 20050101
  2. HUMIRA [Suspect]
     Indication: PSORIASIS
     Route: 058
     Dates: start: 20050101, end: 20050101
  3. HUMIRA [Suspect]
  4. HUMIRA [Suspect]
     Dates: start: 20060301, end: 20060501
  5. HUMIRA [Suspect]
     Dates: start: 20070201
  6. HUMIRA [Suspect]
     Dates: start: 20070801, end: 20080201
  7. HUMIRA [Suspect]
  8. MELOXICAM [Concomitant]
     Indication: ARTHRITIS
     Route: 048
     Dates: start: 20030101
  9. AMITRIPTYLINE HYDROCHLORIDE [Concomitant]
     Indication: DRUG USE FOR UNKNOWN INDICATION
  10. CLONAZEPAM [Concomitant]
     Indication: ANXIETY
     Route: 048
     Dates: start: 19980101
  11. ROPINIROLE HCL [Concomitant]
     Indication: DRUG USE FOR UNKNOWN INDICATION
  12. GLIMEPIRIDE [Concomitant]
     Indication: DIABETES MELLITUS
     Dosage: 2 MG IN AM AND 1 MG IN PM
     Route: 048
  13. MORPHINE [Concomitant]
     Indication: DRUG USE FOR UNKNOWN INDICATION
     Route: 048
  14. MORPHINE [Concomitant]
     Route: 048
  15. MEGAVITAMIN FOR WOMEN [Concomitant]
     Indication: DRUG USE FOR UNKNOWN INDICATION
  16. OMEPRAZOLE [Concomitant]
     Indication: DRUG USE FOR UNKNOWN INDICATION
     Route: 048
     Dates: start: 20050101
  17. SENNA ALEXANDRINA [Concomitant]
     Indication: CONSTIPATION PROPHYLAXIS
     Route: 048
  18. AMITRIPTYLINE HCL [Concomitant]
     Indication: DRUG USE FOR UNKNOWN INDICATION
     Route: 048
     Dates: start: 20050101

REACTIONS (14)
  - BEDRIDDEN [None]
  - CONSTIPATION [None]
  - FOOD POISONING [None]
  - FOOT DEFORMITY [None]
  - HAND DEFORMITY [None]
  - HIP ARTHROPLASTY [None]
  - ILEITIS [None]
  - IMPAIRED DRIVING ABILITY [None]
  - NAUSEA [None]
  - SINUS DISORDER [None]
  - SINUSITIS [None]
  - TOOTH EXTRACTION [None]
  - VOMITING [None]
  - WEIGHT DECREASED [None]
